FAERS Safety Report 8510170-1 (Version None)
Quarter: 2012Q3

REPORT INFORMATION
  Report Type: 
  Country: None (occurrence: None)
  Receive Date: 20120713
  Receipt Date: 20120629
  Transmission Date: 20120928
  Serious: Yes (Other)
  Sender: FDA-Public Use
  Company Number: US-WATSON-2012-11847

PATIENT
  Sex: Female

DRUGS (1)
  1. CRINONE [Suspect]
     Indication: PRODUCT USED FOR UNKNOWN INDICATION
     Dosage: ONE TIME PER DAY
     Route: 065

REACTIONS (1)
  - FOETAL DEATH [None]
